FAERS Safety Report 13868548 (Version 1)
Quarter: 2017Q3

REPORT INFORMATION
  Report Type: Report from Study
  Country: AU (occurrence: AU)
  Receive Date: 20170815
  Receipt Date: 20170815
  Transmission Date: 20171127
  Serious: Yes (Death)
  Sender: FDA-Public Use
  Company Number: AU-ACTELION-A-CH2017-157977

PATIENT
  Age: 80 Year
  Sex: Female
  Weight: 69 kg

DRUGS (2)
  1. OPSUMIT [Suspect]
     Active Substance: MACITENTAN
     Indication: PULMONARY HYPERTENSION
     Dosage: 10 MG, UNK
     Route: 048
     Dates: start: 201703, end: 20170730
  2. VENTAVIS [Suspect]
     Active Substance: ILOPROST
     Indication: PULMONARY HYPERTENSION
     Dosage: 5 ?G, UNK
     Route: 055
     Dates: start: 201604, end: 20170730

REACTIONS (1)
  - Death [Fatal]

NARRATIVE: CASE EVENT DATE: 20170730
